FAERS Safety Report 9970308 (Version 4)
Quarter: 2014Q2

REPORT INFORMATION
  Report Type: Spontaneous
  Country: JP (occurrence: JP)
  Receive Date: 20140306
  Receipt Date: 20140619
  Transmission Date: 20141212
  Serious: Yes (Death, Life-Threatening)
  Sender: FDA-Public Use
  Company Number: JP-BRISTOL-MYERS SQUIBB COMPANY-19730753

PATIENT
  Age: 76 Year
  Sex: Male
  Weight: 47 kg

DRUGS (13)
  1. ERBITUX SOLN FOR INF 5MG/ML [Suspect]
     Indication: HYPOPHARYNGEAL CANCER
     Dosage: 19SEP2013-10OCT13,250MG/M2:21DAYS?26SEP13-03OCT13
     Route: 041
     Dates: start: 20130912, end: 20131010
  2. ERBITUX SOLN FOR INF 5MG/ML [Suspect]
     Indication: HEAD AND NECK CANCER
     Dosage: 19SEP2013-10OCT13,250MG/M2:21DAYS?26SEP13-03OCT13
     Route: 041
     Dates: start: 20130912, end: 20131010
  3. OLMETEC [Concomitant]
     Route: 048
     Dates: end: 20131015
  4. NORVASC [Concomitant]
     Route: 048
     Dates: end: 20131015
  5. CARDENALIN [Concomitant]
     Route: 048
     Dates: end: 20131015
  6. JANUVIA [Concomitant]
     Route: 048
     Dates: end: 20131015
  7. NOVORAPID [Concomitant]
     Indication: DIABETES MELLITUS
     Dosage: 1DF=2-4-2 IU
     Route: 058
  8. FEBUXOSTAT [Concomitant]
     Route: 048
     Dates: end: 20131015
  9. BEZAFIBRATE [Concomitant]
     Route: 048
     Dates: end: 20131015
  10. URSODEOXYCHOLIC ACID [Concomitant]
     Route: 048
     Dates: end: 20131015
  11. MUCOSTA [Concomitant]
     Route: 048
     Dates: end: 20131015
  12. AMLODIN [Concomitant]
     Route: 048
     Dates: end: 20131015
  13. DEXART [Concomitant]
     Indication: PREMEDICATION
     Route: 065
     Dates: start: 20130912, end: 20131010

REACTIONS (2)
  - Interstitial lung disease [Fatal]
  - Cardiac failure [Not Recovered/Not Resolved]
